FAERS Safety Report 15533451 (Version 1)
Quarter: 2018Q4

REPORT INFORMATION
  Report Type: Spontaneous
  Country: US (occurrence: US)
  Receive Date: 20181019
  Receipt Date: 20181019
  Transmission Date: 20190205
  Serious: Yes (Hospitalization)
  Sender: FDA-Public Use
  Company Number: US-TEVA-2018-US-962764

PATIENT
  Sex: Female

DRUGS (3)
  1. ACTIQ [Suspect]
     Active Substance: FENTANYL CITRATE
     Indication: INTERSTITIAL LUNG DISEASE
     Route: 048
  2. FENTANYL TRANSDERMAL SYSTEM [Suspect]
     Active Substance: FENTANYL
     Indication: INTERSTITIAL LUNG DISEASE
     Dosage: PATCH
     Route: 062
  3. MORPHINE [Suspect]
     Active Substance: MORPHINE
     Indication: PAIN
     Route: 065

REACTIONS (2)
  - Product use in unapproved indication [Unknown]
  - Respiratory disorder [Unknown]
